FAERS Safety Report 22356285 (Version 1)
Quarter: 2023Q2

REPORT INFORMATION
  Report Type: Spontaneous
  Country: US (occurrence: US)
  Receive Date: 20230523
  Receipt Date: 20230523
  Transmission Date: 20230721
  Serious: Yes (Hospitalization, Other)
  Sender: FDA-Public Use
  Company Number: US-APIL-2315137US

PATIENT
  Sex: Female
  Weight: 48 kg

DRUGS (2)
  1. SAVELLA [Suspect]
     Active Substance: MILNACIPRAN HYDROCHLORIDE
     Indication: Trigeminal neuralgia
     Dosage: 100 MG, BID
     Route: 048
     Dates: start: 2013
  2. SAVELLA [Suspect]
     Active Substance: MILNACIPRAN HYDROCHLORIDE
     Indication: Fibromyalgia

REACTIONS (6)
  - Intestinal obstruction [Unknown]
  - Intestinal obstruction [Unknown]
  - Intestinal obstruction [Unknown]
  - Intestinal obstruction [Unknown]
  - Off label use [Unknown]
  - Constipation [Unknown]

NARRATIVE: CASE EVENT DATE: 20200901
